FAERS Safety Report 15681333 (Version 1)
Quarter: 2018Q4

REPORT INFORMATION
  Report Type: Spontaneous
  Country: US (occurrence: US)
  Receive Date: 20181203
  Receipt Date: 20181203
  Transmission Date: 20190205
  Serious: No
  Sender: FDA-Public Use
  Company Number: US-TEVA-2018-US-975778

PATIENT
  Age: 69 Year
  Sex: Female

DRUGS (1)
  1. ALENDRONATE SODIUM. [Suspect]
     Active Substance: ALENDRONATE SODIUM
     Indication: PRODUCT USED FOR UNKNOWN INDICATION
     Dosage: 1 DOSAGE FORM= 70
     Route: 065
     Dates: start: 20180206, end: 20181026

REACTIONS (2)
  - Lymphadenopathy [Recovered/Resolved]
  - Oral infection [Recovered/Resolved]

NARRATIVE: CASE EVENT DATE: 20180206
